FAERS Safety Report 8423687 (Version 3)
Quarter: 2012Q4

REPORT INFORMATION
  Report Type: 
  Country: US (occurrence: US)
  Receive Date: 20120224
  Receipt Date: 20120830
  Transmission Date: 20130627
  Serious: No
  Sender: FDA-Public Use
  Company Number: US-PFIZER INC-2012046791

PATIENT
  Age: 44 Year
  Sex: Female
  Weight: 65.8 kg

DRUGS (1)
  1. DEPO-PROVERA [Suspect]
     Indication: CONTRACEPTION
     Dosage: 150 mg, three times a month
     Dates: start: 20000310

REACTIONS (5)
  - Weight decreased [Unknown]
  - Visual impairment [Not Recovered/Not Resolved]
  - Piriformis syndrome [Unknown]
  - Weight increased [Recovered/Resolved]
  - Inappropriate schedule of drug administration [Unknown]
